FAERS Safety Report 15794666 (Version 2)
Quarter: 2019Q1

REPORT INFORMATION
  Report Type: Spontaneous
  Country: US (occurrence: US)
  Receive Date: 20190107
  Receipt Date: 20190204
  Transmission Date: 20190417
  Serious: Yes (Other)
  Sender: FDA-Public Use
  Company Number: US-PFIZER INC-2018536912

PATIENT
  Age: 71 Year
  Sex: Female
  Weight: 83.46 kg

DRUGS (2)
  1. IBRANCE [Suspect]
     Active Substance: PALBOCICLIB
     Indication: BREAST CANCER METASTATIC
     Dosage: 125 MG, CYCLIC (EVERY 21 DAYS)
     Dates: start: 2018, end: 201812
  2. IBRANCE [Suspect]
     Active Substance: PALBOCICLIB
     Dosage: 125 MG, CYCLIC (21 DAYS OFF 7 DAYS/1 CAPSULE BY MOUTH EVERY DAY FOR 21 DAYS THEN OFF 7 DAYS)
     Dates: start: 201812

REACTIONS (6)
  - Nocturnal dyspnoea [Unknown]
  - Anxiety [Unknown]
  - Pneumonia [Unknown]
  - Thinking abnormal [Unknown]
  - Insomnia [Unknown]
  - Restless legs syndrome [Unknown]
